FAERS Safety Report 10672503 (Version 5)
Quarter: 2015Q3

REPORT INFORMATION
  Report Type: Spontaneous
  Country: JP (occurrence: JP)
  Receive Date: 20141223
  Receipt Date: 20150701
  Transmission Date: 20151125
  Serious: Yes (Hospitalization)
  Sender: FDA-Public Use
  Company Number: JP-009507513-1412JPN006913

PATIENT
  Age: 54 Year
  Sex: Male

DRUGS (2)
  1. REBETOL [Suspect]
     Active Substance: RIBAVIRIN
     Indication: CHRONIC HEPATITIS C
     Dosage: DAILY DOSAGE UNKNOWN
     Route: 048
     Dates: end: 201402
  2. PEGINTRON [Suspect]
     Active Substance: PEGINTERFERON ALFA-2B
     Indication: CHRONIC HEPATITIS C
     Dosage: DAILY DOSAGE UNKNOWN
     Route: 058
     Dates: end: 201402

REACTIONS (1)
  - Psoriasis [Recovered/Resolved]

NARRATIVE: CASE EVENT DATE: 201402
